FAERS Safety Report 13051200 (Version 1)
Quarter: 2016Q4

REPORT INFORMATION
  Report Type: Spontaneous
  Country: US (occurrence: US)
  Receive Date: 20161221
  Receipt Date: 20161221
  Transmission Date: 20170207
  Serious: No
  Sender: FDA-Public Use
  Company Number: US-009507513-1612USA007258

PATIENT
  Age: 68 Year
  Sex: Female

DRUGS (5)
  1. AMITRIPTYLINE HYDROCHLORIDE. [Suspect]
     Active Substance: AMITRIPTYLINE HYDROCHLORIDE
     Dosage: 1 TABLET, TWICE A DAY
     Route: 048
  2. PRINIVIL [Suspect]
     Active Substance: LISINOPRIL
     Dosage: UNK
     Route: 048
     Dates: start: 20100702
  3. LYRICA [Suspect]
     Active Substance: PREGABALIN
     Dosage: 200 MG, TID
     Route: 048
     Dates: start: 20110603
  4. ZOCOR [Suspect]
     Active Substance: SIMVASTATIN
     Dosage: 1 TABLET, QD
     Route: 048
     Dates: start: 20140219
  5. TRAMADOL HYDROCHLORIDE. [Suspect]
     Active Substance: TRAMADOL HYDROCHLORIDE
     Dosage: 50 MG, QD
     Route: 048

REACTIONS (3)
  - Neuropathy peripheral [Unknown]
  - Lumbar spinal stenosis [Unknown]
  - Heart rate increased [Unknown]

NARRATIVE: CASE EVENT DATE: 20160314
